FAERS Safety Report 6917317-9 (Version None)
Quarter: 2010Q3

REPORT INFORMATION
  Report Type: 
  Country: None (occurrence: None)
  Receive Date: 20100721
  Receipt Date: 20100415
  Transmission Date: 20110219
  Serious: No
  Sender: FDA-Public Use
  Company Number: 2010AL000082

PATIENT
  Age: 70 Year
  Sex: Male

DRUGS (4)
  1. FOLOTYN [Suspect]
     Indication: T-CELL LYMPHOMA
     Dosage: 30 MG/M**2;
     Dates: start: 20100201
  2. FOLIC ACID [Concomitant]
  3. VITAMIN B-12 [Concomitant]
  4. ALLOPURINOL [Concomitant]

REACTIONS (3)
  - PAIN IN EXTREMITY [None]
  - PRURITUS [None]
  - SKIN ULCER [None]
